FAERS Safety Report 25104495 (Version 1)
Quarter: 2025Q1

REPORT INFORMATION
  Report Type: Spontaneous
  Country: US (occurrence: US)
  Receive Date: 20250321
  Receipt Date: 20250321
  Transmission Date: 20250409
  Serious: No
  Sender: MERCK SHARP & DOHME LLC
  Company Number: US-009507513-2259976

PATIENT
  Age: 85 Year
  Sex: Female

DRUGS (1)
  1. BELSOMRA [Suspect]
     Active Substance: SUVOREXANT
     Indication: Insomnia
     Route: 048
     Dates: start: 20250207

REACTIONS (10)
  - Headache [Unknown]
  - Palpitations [Unknown]
  - Dyskinesia [Unknown]
  - Product prescribing issue [Unknown]
  - Abnormal dreams [Unknown]
  - Eye movement disorder [Unknown]
  - Asthenia [Unknown]
  - Fear [Unknown]
  - Inappropriate schedule of product administration [Unknown]
  - Lethargy [Unknown]

NARRATIVE: CASE EVENT DATE: 20250201
